FAERS Safety Report 19562465 (Version 1)
Quarter: 2021Q3

REPORT INFORMATION
  Report Type: Spontaneous
  Country: CA (occurrence: CA)
  Receive Date: 20210716
  Receipt Date: 20210716
  Transmission Date: 20211014
  Serious: Yes (Hospitalization)
  Sender: FDA-Public Use
  Company Number: NVSC2021CA155222

PATIENT
  Age: 56 Year
  Sex: Female

DRUGS (2)
  1. INDAPAMIDE. [Interacting]
     Active Substance: INDAPAMIDE
     Indication: BLOOD PRESSURE MEASUREMENT
     Route: 065
  2. MAYZENT [Suspect]
     Active Substance: SIPONIMOD
     Indication: MULTIPLE SCLEROSIS
     Dosage: 2 MG, QD
     Route: 048

REACTIONS (7)
  - Dizziness [Recovering/Resolving]
  - Vomiting [Recovering/Resolving]
  - Drug interaction [Recovering/Resolving]
  - Blood electrolytes abnormal [Recovering/Resolving]
  - Herpes zoster [Recovering/Resolving]
  - Nausea [Recovering/Resolving]
  - Neuralgia [Recovering/Resolving]
